FAERS Safety Report 13122014 (Version 1)
Quarter: 2017Q1

REPORT INFORMATION
  Report Type: Spontaneous
  Country: US (occurrence: US)
  Receive Date: 20170117
  Receipt Date: 20170117
  Transmission Date: 20170428
  Serious: No
  Sender: FDA-Public Use
  Company Number: US-MYLANLABS-2016M1054050

PATIENT
  Age: 45 Year
  Sex: Female
  Weight: 122.45 kg

DRUGS (1)
  1. ESTRADIOL TRANSDERMAL SYSTEM [Suspect]
     Active Substance: ESTRADIOL
     Indication: HORMONE REPLACEMENT THERAPY
     Dosage: 0.1 MG, QD,CHANGES TW
     Route: 062
     Dates: start: 20161129

REACTIONS (1)
  - Nipple pain [Not Recovered/Not Resolved]

NARRATIVE: CASE EVENT DATE: 20161205
